FAERS Safety Report 8054977-6 (Version None)
Quarter: 2012Q1

REPORT INFORMATION
  Report Type: 
  Country: None (occurrence: None)
  Receive Date: 20120119
  Receipt Date: 20120112
  Transmission Date: 20120608
  Serious: Yes (Other)
  Sender: FDA-Public Use
  Company Number: NL-PFIZER INC-2012010139

PATIENT
  Age: 25 Year
  Sex: Female

DRUGS (1)
  1. DEPO-PROVERA [Suspect]
     Indication: CONTRACEPTION
     Dosage: 150 MG, UNK
     Dates: start: 20110902, end: 20111215

REACTIONS (5)
  - PRURITUS [None]
  - HYPERSENSITIVITY [None]
  - PRESYNCOPE [None]
  - ERYTHEMA [None]
  - VOMITING [None]
